FAERS Safety Report 8887585 (Version 1)
Quarter: 2012Q4

REPORT INFORMATION
  Report Type: Spontaneous
  Country: GB (occurrence: None)
  Receive Date: 20121031
  Receipt Date: 20121031
  Transmission Date: 20130627
  Serious: Yes (Other)
  Sender: FDA-Public Use
  Company Number: GBN-022934

PATIENT
  Age: 12 Year

DRUGS (2)
  1. BUSULFAN [Suspect]
     Indication: BONE MARROW CONDITIONING REGIMEN
     Dosage: 2-4 mg/kg/day, on days -9 to -6
  2. CYCLOPHOSPHAMIDE [Suspect]
     Indication: BONE MARROW CONDITIONING REGIMEN
     Dosage: 50 mg/kg/day, on days -5 to -1

REACTIONS (3)
  - Tooth hypoplasia [None]
  - Toxicity to various agents [None]
  - Tooth hypoplasia [None]
